FAERS Safety Report 5008524-3 (Version None)
Quarter: 2006Q2

REPORT INFORMATION
  Report Type: 
  Country: None (occurrence: None)
  Receive Date: 20060523
  Receipt Date: 20060403
  Transmission Date: 20061013
  Serious: Yes (Other)
  Sender: FDA-Public Use
  Company Number: HQWYE642005APR06

PATIENT
  Age: 38 Year
  Sex: Female
  Weight: 58 kg

DRUGS (2)
  1. ENBREL [Suspect]
     Indication: RHEUMATOID ARTHRITIS
     Route: 058
     Dates: start: 20050501, end: 20060327
  2. UNSPECIFIED MEDICATION [Concomitant]

REACTIONS (3)
  - CONDITION AGGRAVATED [None]
  - HEPATIC ENZYME INCREASED [None]
  - RHEUMATOID ARTHRITIS [None]
